FAERS Safety Report 19584423 (Version 1)
Quarter: 2021Q3

REPORT INFORMATION
  Report Type: Spontaneous
  Country: US (occurrence: US)
  Receive Date: 20210720
  Receipt Date: 20210720
  Transmission Date: 20211014
  Serious: No
  Sender: FDA-Public Use
  Company Number: US-ASTRAZENECA-2021A569796

PATIENT
  Sex: Female

DRUGS (2)
  1. BUDESONIDE AND FORMOTEROL AEROSOL [Suspect]
     Active Substance: BUDESONIDE\FORMOTEROL FUMARATE DIHYDRATE
     Indication: EMPHYSEMA
     Dosage: 160/4.5 MCG INHALER TO INHALE 2 PUFFS BID
     Route: 055
     Dates: start: 202105
  2. BUDESONIDE AND FORMOTEROL AEROSOL [Suspect]
     Active Substance: BUDESONIDE\FORMOTEROL FUMARATE DIHYDRATE
     Indication: CHRONIC OBSTRUCTIVE PULMONARY DISEASE
     Dosage: 160/4.5 MCG INHALER TO INHALE 2 PUFFS BID
     Route: 055
     Dates: start: 202105

REACTIONS (1)
  - Cellulitis [Recovering/Resolving]
